FAERS Safety Report 10857410 (Version 1)
Quarter: 2015Q1

REPORT INFORMATION
  Report Type: Spontaneous
  Country: US (occurrence: US)
  Receive Date: 20150223
  Receipt Date: 20150223
  Transmission Date: 20150721
  Serious: No
  Sender: FDA-Public Use
  Company Number: US-CELGENEUS-USA-2014104353

PATIENT
  Age: 58 Year
  Sex: Female
  Weight: 72.1 kg

DRUGS (1)
  1. REVLIMID [Suspect]
     Active Substance: LENALIDOMIDE
     Indication: PLASMA CELL MYELOMA
     Dosage: 25 MILLIGRAM
     Route: 048
     Dates: start: 20141003

REACTIONS (7)
  - Rhinorrhoea [Unknown]
  - Dermatitis bullous [Unknown]
  - Oropharyngeal pain [Unknown]
  - Eye pruritus [Unknown]
  - Toothache [Unknown]
  - Back pain [Unknown]
  - Pain in extremity [Unknown]

NARRATIVE: CASE EVENT DATE: 20141006
